FAERS Safety Report 9031084 (Version 1)
Quarter: 2013Q1

REPORT INFORMATION
  Report Type: Report from Study
  Country: DK (occurrence: DK)
  Receive Date: 20130123
  Receipt Date: 20130123
  Transmission Date: 20140127
  Serious: Yes (Hospitalization)
  Sender: FDA-Public Use
  Company Number: DK-BAXTER-2013BAX002622

PATIENT
  Age: 62 Year
  Sex: Male
  Weight: 108 kg

DRUGS (12)
  1. SENDOXAN [Suspect]
     Indication: DIFFUSE LARGE B-CELL LYMPHOMA
     Route: 042
     Dates: start: 20111014
  2. SENDOXAN [Suspect]
     Route: 042
     Dates: start: 20111103
  3. PREDNISONE [Suspect]
     Indication: DIFFUSE LARGE B-CELL LYMPHOMA
     Route: 048
     Dates: start: 20111014
  4. RITUXIMAB [Suspect]
     Indication: DIFFUSE LARGE B-CELL LYMPHOMA
     Route: 042
     Dates: start: 20111014
  5. RITUXIMAB [Suspect]
     Route: 042
     Dates: start: 20111103
  6. DOXORUBICIN [Suspect]
     Indication: DIFFUSE LARGE B-CELL LYMPHOMA
     Route: 042
     Dates: start: 20111014
  7. DOXORUBICIN [Suspect]
     Route: 042
     Dates: start: 20111103
  8. DOXORUBICIN [Suspect]
     Route: 042
     Dates: start: 20111113
  9. VINCRISTINE [Suspect]
     Indication: DIFFUSE LARGE B-CELL LYMPHOMA
     Route: 042
     Dates: start: 20111014
  10. VINCRISTINE [Suspect]
     Route: 042
     Dates: start: 20111103
  11. GRANULOCYTE COLONY STIMULATING FACTOR [Suspect]
     Indication: DIFFUSE LARGE B-CELL LYMPHOMA
     Route: 058
     Dates: start: 20111017
  12. TINZAPARIN SODIUM [Suspect]
     Indication: PROPHYLAXIS
     Route: 058
     Dates: start: 20111103

REACTIONS (1)
  - Thrombosis [Recovered/Resolved]
